FAERS Safety Report 9033036 (Version 1)
Quarter: 2013Q1

REPORT INFORMATION
  Report Type: Spontaneous
  Country: IE (occurrence: IE)
  Receive Date: 20130128
  Receipt Date: 20130128
  Transmission Date: 20140127
  Serious: Yes (Other)
  Sender: FDA-Public Use
  Company Number: PHFR2012IE006409

PATIENT
  Age: 61 Year
  Sex: Female

DRUGS (9)
  1. CLOZARIL [Suspect]
     Indication: SCHIZOAFFECTIVE DISORDER
     Route: 048
     Dates: start: 20110913
  2. CLOZARIL [Suspect]
     Dosage: 125 MG
  3. PRIADEL [Concomitant]
     Indication: SCHIZOAFFECTIVE DISORDER
     Dosage: 500 MG, UNK
     Route: 048
  4. KWELLS [Concomitant]
     Dosage: 300 MG, UNK
     Route: 048
  5. AMLODIPINE [Concomitant]
     Dosage: 5 MG
     Route: 048
  6. OMEPRAZOLE [Concomitant]
     Dosage: 10 MG
     Route: 048
  7. ELTROXIN [Concomitant]
     Dosage: 150 MG
     Route: 048
  8. ELTROXIN [Concomitant]
     Dosage: 100 MG
     Route: 048
  9. ATORVASTATIN [Concomitant]

REACTIONS (4)
  - Sensory disturbance [Recovering/Resolving]
  - Restless legs syndrome [Recovering/Resolving]
  - Dizziness [Recovering/Resolving]
  - Drug ineffective [Recovering/Resolving]
